FAERS Safety Report 14176746 (Version 4)
Quarter: 2019Q2

REPORT INFORMATION
  Report Type: Report from Study
  Country: US (occurrence: US)
  Receive Date: 20171110
  Receipt Date: 20190408
  Transmission Date: 20190711
  Serious: Yes (Other)
  Sender: FDA-Public Use
  Company Number: US-ROCHE-2020547

PATIENT
  Sex: Female

DRUGS (3)
  1. OCREVUS [Suspect]
     Active Substance: OCRELIZUMAB
     Indication: RELAPSING-REMITTING MULTIPLE SCLEROSIS
     Dosage: ON 31/MAR/2017, THE PATIENT WAS PRESCRIBED WITH INTRAVENOUS OCRELIZUMAB INFUSION 300 MG O DAY 1 AND
     Route: 042
     Dates: start: 201711
  2. OCREVUS [Suspect]
     Active Substance: OCRELIZUMAB
     Indication: RELAPSING MULTIPLE SCLEROSIS
     Route: 042
     Dates: start: 201701
  3. OCREVUS [Suspect]
     Active Substance: OCRELIZUMAB
     Route: 042
     Dates: start: 20170918

REACTIONS (8)
  - Cystitis [Not Recovered/Not Resolved]
  - Oral herpes [Unknown]
  - Muscular weakness [Not Recovered/Not Resolved]
  - Feeling abnormal [Unknown]
  - Oral herpes [Not Recovered/Not Resolved]
  - Multiple sclerosis relapse [Recovered/Resolved]
  - Suicidal ideation [Unknown]
  - Gastrointestinal disorder [Unknown]

NARRATIVE: CASE EVENT DATE: 2017
